FAERS Safety Report 8022085-6 (Version None)
Quarter: 2012Q1

REPORT INFORMATION
  Report Type: 
  Country: None (occurrence: None)
  Receive Date: 20120104
  Receipt Date: 20111228
  Transmission Date: 20120608
  Serious: Yes (Hospitalization)
  Sender: FDA-Public Use
  Company Number: PHHY2011ES113227

PATIENT
  Age: 69 Year
  Sex: Female

DRUGS (1)
  1. FEMARA [Suspect]
     Dosage: UNK
     Dates: start: 20070101

REACTIONS (1)
  - ATRIAL FIBRILLATION [None]
